FAERS Safety Report 9562100 (Version 10)
Quarter: 2014Q4

REPORT INFORMATION
  Report Type: Spontaneous
  Country: CA (occurrence: CA)
  Receive Date: 20130927
  Receipt Date: 20141020
  Transmission Date: 20150529
  Serious: Yes (Hospitalization, Other)
  Sender: FDA-Public Use
  Company Number: CA-ROCHE-1281506

PATIENT
  Age: 55 Year
  Sex: Female

DRUGS (2)
  1. XOLAIR [Suspect]
     Active Substance: OMALIZUMAB
     Indication: ASTHMA
     Route: 058
     Dates: start: 20071108
  2. XOLAIR [Suspect]
     Active Substance: OMALIZUMAB
     Route: 058
     Dates: start: 20090527

REACTIONS (22)
  - Pneumonia [Unknown]
  - Dysphonia [Unknown]
  - Pancreatic disorder [Unknown]
  - Nasopharyngitis [Unknown]
  - Cerebrovascular accident [Unknown]
  - Gastroenteritis [Unknown]
  - Epilepsy [Unknown]
  - Weight decreased [Unknown]
  - Diarrhoea [Unknown]
  - Malaise [Unknown]
  - Coma [Unknown]
  - Vomiting [Unknown]
  - Nausea [Unknown]
  - Drug dose omission [Unknown]
  - Sputum discoloured [Unknown]
  - Cough [Unknown]
  - Diabetes mellitus [Unknown]
  - Amnesia [Unknown]
  - General physical condition abnormal [Unknown]
  - Dyspnoea [Unknown]
  - Oropharyngeal pain [Unknown]
  - Influenza [Unknown]

NARRATIVE: CASE EVENT DATE: 201106
